FAERS Safety Report 23673285 (Version 1)
Quarter: 2024Q1

REPORT INFORMATION
  Report Type: Spontaneous
  Country: CN (occurrence: CN)
  Receive Date: 20240326
  Receipt Date: 20240326
  Transmission Date: 20240409
  Serious: Yes (Other)
  Sender: FDA-Public Use
  Company Number: CN-FreseniusKabi-FK202404681

PATIENT
  Age: 10 Year
  Sex: Female

DRUGS (1)
  1. PROPOFOL [Suspect]
     Active Substance: PROPOFOL
     Indication: Endoscopy upper gastrointestinal tract
     Dosage: FORM OF ADMIN: INJECTION?ROUTE OF ADMIN: INTRAVENOUS
     Dates: start: 20240305, end: 20240306

REACTIONS (2)
  - Tardive seizure [Recovering/Resolving]
  - Dyskinesia [Recovering/Resolving]

NARRATIVE: CASE EVENT DATE: 20240305
